FAERS Safety Report 5384633-4 (Version None)
Quarter: 2007Q3

REPORT INFORMATION
  Report Type: 
  Country: None (occurrence: None)
  Receive Date: 20070711
  Receipt Date: 20070710
  Transmission Date: 20080115
  Serious: Yes (Hospitalization)
  Sender: FDA-Public Use
  Company Number: AR-BOEHRINGER INGELHEIM PHARMACEUTICALS, INC.-2007-BP-16805RA

PATIENT
  Sex: Female
  Weight: 53.4 kg

DRUGS (3)
  1. TIPRANAVIR / RITONAVIR CAPSULES, SOFTGELATIN [Suspect]
     Indication: HIV INFECTION
     Dosage: TPV/RTV 1000/400 MG
     Route: 048
     Dates: start: 20040928
  2. TENOFOVIR [Concomitant]
     Indication: HIV INFECTION
     Route: 048
     Dates: start: 20030827, end: 20070524
  3. LAMIVUDINE [Concomitant]
     Indication: HIV INFECTION
     Route: 048
     Dates: start: 20030827, end: 20070524

REACTIONS (3)
  - ECTOPIC PREGNANCY [None]
  - FALLOPIAN TUBE OBSTRUCTION [None]
  - POST ABORTION HAEMORRHAGE [None]
